FAERS Safety Report 7133202-4 (Version None)
Quarter: 2010Q4

REPORT INFORMATION
  Report Type: 
  Country: None (occurrence: None)
  Receive Date: 20101202
  Receipt Date: 20101125
  Transmission Date: 20110411
  Serious: Yes (Other)
  Sender: FDA-Public Use
  Company Number: JP-PFIZER INC-2010105135

PATIENT
  Age: 80 Year
  Sex: Female
  Weight: 50 kg

DRUGS (4)
  1. LIPITOR [Suspect]
     Dosage: 10 MG, (UID) 1X/DAY
     Route: 048
     Dates: start: 20100113, end: 20100622
  2. 8-HOUR BAYER [Suspect]
     Dosage: 100 MG, (UID) 1X/DAY
     Route: 048
  3. AMLODIPINE [Concomitant]
     Indication: HYPERTENSION
     Dosage: UNK
  4. BLOPRESS [Concomitant]
     Indication: HYPERTENSION
     Dosage: UNK

REACTIONS (1)
  - CHROMATURIA [None]
